FAERS Safety Report 12545418 (Version 1)
Quarter: 2016Q3

REPORT INFORMATION
  Report Type: Spontaneous
  Country: US (occurrence: US)
  Receive Date: 20160711
  Receipt Date: 20160711
  Transmission Date: 20161109
  Serious: No
  Sender: FDA-Public Use
  Company Number: US-BAYER-2016-127306

PATIENT
  Age: 80 Year
  Sex: Female
  Weight: 54.42 kg

DRUGS (4)
  1. CELEBREX [Concomitant]
     Active Substance: CELECOXIB
     Dosage: UNK
  2. ZOCOR [Concomitant]
     Active Substance: SIMVASTATIN
     Dosage: UNK
  3. MIRAFIBER CAPLETS [Suspect]
     Active Substance: CITRIC ACID MONOHYDRATE\METHYLCELLULOSE
     Indication: FLATULENCE
     Dosage: 1 DF, BID
     Route: 048
     Dates: start: 20160627, end: 20160627
  4. MIRALAX [Suspect]
     Active Substance: POLYETHYLENE GLYCOL 3350
     Indication: CONSTIPATION
     Dosage: UNK,CURRENTLY USING THE PRODUCT ONCE A DAY,BUT IF SHE NEEDED TO USE IT TWICE A DAY
     Route: 048

REACTIONS (7)
  - Product use issue [None]
  - Pollakiuria [Not Recovered/Not Resolved]
  - Flatulence [None]
  - Blood pressure increased [Not Recovered/Not Resolved]
  - Product preparation error [None]
  - Headache [Recovered/Resolved]
  - Product use issue [None]

NARRATIVE: CASE EVENT DATE: 20160627
